FAERS Safety Report 13277830 (Version 1)
Quarter: 2017Q1

REPORT INFORMATION
  Report Type: Other
  Country: FR (occurrence: FR)
  Receive Date: 20170228
  Receipt Date: 20170228
  Transmission Date: 20170428
  Serious: Yes (Other)
  Sender: FDA-Public Use
  Company Number: FR-EMCURE PHARMS-2017HTG00041

PATIENT
  Age: 63 Year
  Sex: Female

DRUGS (8)
  1. EMEND [Concomitant]
     Active Substance: APREPITANT
  2. BICNU [Suspect]
     Active Substance: CARMUSTINE
     Dosage: 495 MG, UNK
     Route: 042
     Dates: start: 20161230, end: 20161230
  3. CYTARABINE (SANDOZ) [Suspect]
     Active Substance: CYTARABINE
     Dosage: 330 MG, UNK
     Route: 042
     Dates: start: 20161231, end: 20170103
  4. ETOPOSIDE (MYLAN) [Suspect]
     Active Substance: ETOPOSIDE
     Dosage: 165 UNK, UNK
     Route: 042
     Dates: start: 20161231, end: 20170103
  5. LASILIX [Concomitant]
     Active Substance: FUROSEMIDE
  6. MELPHALAN [Suspect]
     Active Substance: MELPHALAN
     Dosage: 231 MG, UNK
     Route: 042
     Dates: start: 20170104, end: 20170104
  7. PRIMPERAN [Concomitant]
     Active Substance: METOCLOPRAMIDE HYDROCHLORIDE
  8. POLARAMINE [Concomitant]
     Active Substance: DEXCHLORPHENIRAMINE MALEATE

REACTIONS (2)
  - Toxic skin eruption [Recovered/Resolved]
  - Pruritus [Recovered/Resolved]

NARRATIVE: CASE EVENT DATE: 20170109
